FAERS Safety Report 5999802-X (Version None)
Quarter: 2008Q4

REPORT INFORMATION
  Report Type: 
  Country: None (occurrence: None)
  Receive Date: 20081211
  Receipt Date: 20081104
  Transmission Date: 20090506
  Serious: Yes (Other)
  Sender: FDA-Public Use
  Company Number: WWISSUE-233

PATIENT
  Sex: Female

DRUGS (2)
  1. PREDNISONE TAB [Suspect]
     Indication: ARTHRITIS
     Dosage: 10 MG B.I.D.
     Dates: start: 20050101, end: 20080101
  2. PREDNISONE TAB [Suspect]
     Indication: ASTHMA
     Dosage: 10 MG B.I.D.
     Dates: start: 20050101, end: 20080101

REACTIONS (1)
  - DRUG INEFFECTIVE [None]
